FAERS Safety Report 6862271-1 (Version None)
Quarter: 2010Q3

REPORT INFORMATION
  Report Type: 
  Country: None (occurrence: None)
  Receive Date: 20100721
  Receipt Date: 20100708
  Transmission Date: 20110219
  Serious: Yes (Disabling)
  Sender: FDA-Public Use
  Company Number: NZ-NOVOPROD-308651

PATIENT
  Age: 55 Year
  Sex: Male

DRUGS (2)
  1. ACTRAPID [Suspect]
     Indication: TYPE 1 DIABETES MELLITUS
  2. PROTAPHANE [Suspect]
     Indication: TYPE 1 DIABETES MELLITUS

REACTIONS (3)
  - BRAIN INJURY [None]
  - FALL [None]
  - HYPOGLYCAEMIC SEIZURE [None]
